FAERS Safety Report 6060442-8 (Version None)
Quarter: 2009Q1

REPORT INFORMATION
  Report Type: 
  Country: None (occurrence: None)
  Receive Date: 20090129
  Receipt Date: 20090112
  Transmission Date: 20090719
  Serious: Yes (Hospitalization)
  Sender: FDA-Public Use
  Company Number: 8041164

PATIENT
  Age: 28 Year
  Sex: Female
  Weight: 45.5 kg

DRUGS (2)
  1. KEPPRA [Suspect]
     Indication: CONVULSION
     Dosage: 2000 MG 2/D PO
     Route: 048
     Dates: start: 20020101
  2. DILANTIN [Concomitant]

REACTIONS (2)
  - BRAIN OPERATION [None]
  - VAGAL NERVE STIMULATOR IMPLANTATION [None]
